FAERS Safety Report 10271474 (Version 1)
Quarter: 2014Q3

REPORT INFORMATION
  Report Type: Spontaneous
  Country: FR (occurrence: FR)
  Receive Date: 20140701
  Receipt Date: 20140701
  Transmission Date: 20150326
  Serious: Yes (Hospitalization)
  Sender: FDA-Public Use
  Company Number: FR-PFIZER INC-2014177119

PATIENT
  Age: 83 Year
  Sex: Male

DRUGS (11)
  1. AMIKACIN [Concomitant]
     Active Substance: AMIKACIN
     Dosage: UNK
     Dates: start: 20140430, end: 20140504
  2. ASPEGIC [Suspect]
     Active Substance: ASPIRIN DL-LYSINE
     Dosage: 100 MG, DAILY
     Route: 042
     Dates: start: 20140422, end: 20140501
  3. CALCIPARINE [Suspect]
     Active Substance: HEPARIN CALCIUM
     Dosage: 0.2 ML, 3X/DAY
     Dates: start: 20140422, end: 20140501
  4. GENTAMICIN [Concomitant]
     Active Substance: GENTAMICIN
     Dosage: 320 MG, DAILY
     Dates: start: 20140421, end: 20140429
  5. PANTOPRAZOLE [Concomitant]
     Active Substance: PANTOPRAZOLE SODIUM
     Dosage: 40 MG, DAILY
     Dates: start: 20140421, end: 20140429
  6. ZYVOXID [Concomitant]
     Active Substance: LINEZOLID
     Dosage: UNK
     Dates: start: 20140502, end: 20140504
  7. TAZOCILLINE [Suspect]
     Active Substance: PIPERACILLIN SODIUM\TAZOBACTAM SODIUM
     Indication: SEPTIC SHOCK
     Dosage: 4 G, 4X/DAY
     Route: 042
     Dates: start: 20140430, end: 20140508
  8. LOXEN [Suspect]
     Active Substance: NICARDIPINE HYDROCHLORIDE
     Dosage: 500 UNK, 3X/DAY
     Route: 042
     Dates: start: 20140421, end: 20140508
  9. METRONIDAZOLE. [Concomitant]
     Active Substance: METRONIDAZOLE
     Dosage: 500 MG, 3X/DAY
     Dates: start: 20140421, end: 20140429
  10. VANCOMYCIN [Concomitant]
     Active Substance: VANCOMYCIN
     Dosage: UNK
     Dates: start: 20140506, end: 20140508
  11. AUGMENTIN [Suspect]
     Active Substance: AMOXICILLIN\CLAVULANATE POTASSIUM
     Dosage: 2 G, 3X/DAY
     Route: 042
     Dates: start: 20140421, end: 20140429

REACTIONS (3)
  - Haematuria [Recovered/Resolved]
  - Epistaxis [Recovered/Resolved]
  - Rectal haemorrhage [Recovered/Resolved]

NARRATIVE: CASE EVENT DATE: 20140426
